FAERS Safety Report 9494355 (Version 2)
Quarter: 2015Q1

REPORT INFORMATION
  Report Type: Spontaneous
  Country: US (occurrence: None)
  Receive Date: 20130828
  Receipt Date: 20150226
  Transmission Date: 20150721
  Serious: Yes (Hospitalization, Other)
  Sender: FDA-Public Use
  Company Number: TPA2013A07815

PATIENT
  Age: 52 Year
  Sex: Male
  Weight: 84.5 kg

DRUGS (11)
  1. ISOSORBIDE [Concomitant]
     Active Substance: ISOSORBIDE
  2. AMBIEN [Concomitant]
     Active Substance: ZOLPIDEM TARTRATE
  3. OMEPRAZOLE. [Concomitant]
     Active Substance: OMEPRAZOLE
  4. CRESTOR (ROSUVASTATIN CALCIUM) [Concomitant]
  5. HYDROCODONE AND ACETAMINOPHEN (VICODIN) [Concomitant]
  6. ACTOS [Suspect]
     Active Substance: PIOGLITAZONE HYDROCHLORIDE
     Indication: DIABETES MELLITUS
     Route: 048
     Dates: start: 2004, end: 201112
  7. PLAVIIX (CLOPIDOGREL BISULFATE) [Concomitant]
  8. LORCET (HYDROCODONE BITARTRATE, PARACETAMOL) [Concomitant]
  9. VERAPAMIL [Concomitant]
     Active Substance: VERAPAMIL HYDROCHLORIDE
  10. TOPAMAX [Concomitant]
     Active Substance: TOPIRAMATE
  11. PRILOSEC (OMEPRAZOLE) [Concomitant]
     Active Substance: OMEPRAZOLE MAGNESIUM

REACTIONS (3)
  - Fall [None]
  - Hip fracture [None]
  - Somnambulism [None]

NARRATIVE: CASE EVENT DATE: 2008
